FAERS Safety Report 25300690 (Version 1)
Quarter: 2025Q2

REPORT INFORMATION
  Report Type: Spontaneous
  Country: US (occurrence: None)
  Receive Date: 20250509
  Receipt Date: 20250509
  Transmission Date: 20250717
  Serious: Yes (Hospitalization, Disabling)
  Sender: FDA-CTU
  Company Number: None

PATIENT
  Age: 34 Year
  Sex: Female
  Weight: 55.8 kg

DRUGS (2)
  1. HUMIRA [Suspect]
     Active Substance: ADALIMUMAB
     Indication: Ankylosing spondylitis
     Dates: start: 20230327, end: 20231231
  2. VITAMINS [Concomitant]
     Active Substance: VITAMINS

REACTIONS (7)
  - Crystalluria [None]
  - Tubulointerstitial nephritis [None]
  - Toxicity to various agents [None]
  - Nephropathy toxic [None]
  - Renal injury [None]
  - Product use complaint [None]
  - Product communication issue [None]

NARRATIVE: CASE EVENT DATE: 20240206
